FAERS Safety Report 5046912-X (Version None)
Quarter: 2006Q3

REPORT INFORMATION
  Report Type: 
  Country: None (occurrence: None)
  Receive Date: 20060710
  Receipt Date: 20060314
  Transmission Date: 20061208
  Serious: Yes (Hospitalization)
  Sender: FDA-Public Use
  Company Number: FR-MERCK-0603FRA00046

PATIENT
  Age: 74 Year
  Sex: Male
  Weight: 85 kg

DRUGS (11)
  1. PRIMAXIN [Suspect]
     Indication: STAPHYLOCOCCAL INFECTION
     Route: 042
     Dates: start: 20060111, end: 20060204
  2. LINEZOLID [Suspect]
     Indication: STAPHYLOCOCCAL INFECTION
     Route: 048
     Dates: start: 20060111, end: 20060204
  3. OMEPRAZOLE [Suspect]
     Route: 048
     Dates: end: 20060204
  4. COLCHICINE [Suspect]
     Route: 048
     Dates: end: 20060204
  5. BUMETANIDE [Suspect]
     Indication: CARDIAC FAILURE
     Route: 048
     Dates: end: 20060204
  6. CARVEDILOL [Concomitant]
     Indication: CARDIAC FAILURE
     Route: 048
  7. ATORVASTATIN CALCIUM [Concomitant]
     Indication: HYPERLIPIDAEMIA
     Route: 048
  8. SPIRONOLACTONE [Concomitant]
     Route: 048
  9. CLOPIDOGREL BISULFATE [Concomitant]
     Route: 048
  10. CANDESARTAN CILEXETIL [Concomitant]
     Indication: HYPERTENSION
     Route: 048
  11. ALLOPURINOL [Concomitant]
     Route: 048

REACTIONS (2)
  - NORMOCHROMIC NORMOCYTIC ANAEMIA [None]
  - THROMBOCYTOPENIA [None]
